FAERS Safety Report 9004682 (Version 1)
Quarter: 2013Q1

REPORT INFORMATION
  Report Type: Spontaneous
  Country: US (occurrence: None)
  Receive Date: 20130103
  Receipt Date: 20130103
  Transmission Date: 20140127
  Serious: Yes (Life-Threatening, Disabling, Other)
  Sender: FDA-Public Use
  Company Number: None

PATIENT
  Age: 57 Year
  Sex: Male
  Weight: 83.01 kg

DRUGS (1)
  1. ATORVASTATIN [Suspect]
     Indication: BLOOD CHOLESTEROL INCREASED
     Dosage: 20MG ONCE DAILY PO
     Route: 048
     Dates: start: 20120115, end: 20120830

REACTIONS (9)
  - Headache [None]
  - Muscle spasms [None]
  - Muscle contractions involuntary [None]
  - Gait disturbance [None]
  - Muscle contractions involuntary [None]
  - Motor neurone disease [None]
  - Amyotrophic lateral sclerosis [None]
  - Product quality issue [None]
  - Product contamination [None]
